FAERS Safety Report 22277643 (Version 1)
Quarter: 2023Q2

REPORT INFORMATION
  Report Type: Spontaneous
  Country: US (occurrence: None)
  Receive Date: 20230503
  Receipt Date: 20230503
  Transmission Date: 20230721
  Serious: Yes (Other)
  Sender: FDA-Public Use
  Company Number: 2023A097437

PATIENT
  Sex: Female

DRUGS (1)
  1. TAGRISSO [Suspect]
     Active Substance: OSIMERTINIB
     Route: 048

REACTIONS (17)
  - Brain neoplasm malignant [Unknown]
  - Head and neck cancer [Unknown]
  - Alopecia [Unknown]
  - Illness [Unknown]
  - Asthenia [Unknown]
  - Constipation [Unknown]
  - Abdominal discomfort [Unknown]
  - Urinary tract infection [Unknown]
  - Fungal infection [Unknown]
  - Epigastric discomfort [Unknown]
  - Hypotension [Unknown]
  - Thyroid disorder [Unknown]
  - Dehydration [Unknown]
  - Underdose [Unknown]
  - Diarrhoea [Unknown]
  - Decreased activity [Unknown]
  - Rash macular [Unknown]
